FAERS Safety Report 20792087 (Version 1)
Quarter: 2022Q2

REPORT INFORMATION
  Report Type: Spontaneous
  Country: US (occurrence: US)
  Receive Date: 20220505
  Receipt Date: 20220505
  Transmission Date: 20220721
  Serious: Yes (Other)
  Sender: FDA-Public Use
  Company Number: US-PFIZER INC-202200149103

PATIENT
  Age: 70 Year
  Sex: Female

DRUGS (1)
  1. XELJANZ XR [Suspect]
     Active Substance: TOFACITINIB CITRATE
     Indication: Spondylolysis
     Dosage: 11 MG

REACTIONS (4)
  - Renal surgery [Unknown]
  - Arthritis [Unknown]
  - Off label use [Unknown]
  - Drug effective for unapproved indication [Unknown]
